FAERS Safety Report 7293675-3 (Version None)
Quarter: 2011Q1

REPORT INFORMATION
  Report Type: 
  Country: None (occurrence: None)
  Receive Date: 20110215
  Receipt Date: 20110211
  Transmission Date: 20110831
  Serious: Yes (Life-Threatening)
  Sender: FDA-Public Use
  Company Number: B0698090A

PATIENT
  Sex: Male

DRUGS (3)
  1. PAROXETINE HCL [Suspect]
     Indication: DEPRESSION
     Dosage: 20MG PER DAY
     Route: 048
     Dates: start: 20110109, end: 20110112
  2. ZYVOX [Suspect]
     Indication: INFECTION
     Dosage: 600MG TWICE PER DAY
     Route: 048
     Dates: start: 20110103, end: 20110111
  3. LOVENOX [Concomitant]
     Dosage: 4000IU PER DAY
     Route: 058
     Dates: start: 20101227, end: 20110111

REACTIONS (4)
  - MUSCLE CONTRACTURE [None]
  - HYPERTHERMIA [None]
  - SEROTONIN SYNDROME [None]
  - THROMBOCYTOPENIA [None]
